FAERS Safety Report 6425924-5 (Version None)
Quarter: 2009Q4

REPORT INFORMATION
  Report Type: 
  Country: None (occurrence: None)
  Receive Date: 20091103
  Receipt Date: 20091103
  Transmission Date: 20100525
  Serious: No
  Sender: FDA-Public Use
  Company Number: None

PATIENT
  Age: 58 Year
  Sex: Male

DRUGS (1)
  1. VARENICLINE [Suspect]
     Dosage: PO
     Route: 048
     Dates: start: 20080916, end: 20081113

REACTIONS (2)
  - DEPRESSION [None]
  - SUICIDAL IDEATION [None]
